FAERS Safety Report 8316669-5 (Version None)
Quarter: 2012Q2

REPORT INFORMATION
  Report Type: 
  Country: None (occurrence: None)
  Receive Date: 20120427
  Receipt Date: 20120425
  Transmission Date: 20120825
  Serious: Yes (Death, Hospitalization)
  Sender: FDA-Public Use
  Company Number: PHHY2012DE035484

PATIENT
  Age: 85 Year
  Sex: Female

DRUGS (1)
  1. SANDOSTATIN LAR [Suspect]
     Indication: ACROMEGALY
     Dosage: 20 MG, EVERY 28 DAYS
     Route: 030
     Dates: start: 20100506, end: 20111121

REACTIONS (4)
  - HIP FRACTURE [None]
  - APALLIC SYNDROME [None]
  - PELVIC FRACTURE [None]
  - FALL [None]
